FAERS Safety Report 9309427 (Version 1)
Quarter: 2013Q2

REPORT INFORMATION
  Report Type: Spontaneous
  Country: US (occurrence: US)
  Receive Date: 20130525
  Receipt Date: 20130525
  Transmission Date: 20140414
  Serious: No
  Sender: FDA-Public Use
  Company Number: US-BRISTOL-MYERS SQUIBB COMPANY-18708156

PATIENT
  Age: 59 Year
  Sex: Male
  Weight: 119.27 kg

DRUGS (3)
  1. BYDUREON [Suspect]
     Indication: DIABETES MELLITUS
     Route: 058
     Dates: start: 201302
  2. METFORMIN [Concomitant]
     Indication: DIABETES MELLITUS
  3. GLIMEPIRIDE [Concomitant]
     Indication: DIABETES MELLITUS

REACTIONS (5)
  - Infrequent bowel movements [Not Recovered/Not Resolved]
  - Micturition frequency decreased [Not Recovered/Not Resolved]
  - Weight decreased [Unknown]
  - Decreased appetite [Not Recovered/Not Resolved]
  - Nausea [Recovered/Resolved]
